FAERS Safety Report 11319486 (Version 1)
Quarter: 2015Q3

REPORT INFORMATION
  Report Type: Report from Study
  Country: US (occurrence: US)
  Receive Date: 20150729
  Receipt Date: 20150729
  Transmission Date: 20151125
  Serious: No
  Sender: FDA-Public Use
  Company Number: US-AMGEN-USASL2015074984

PATIENT
  Age: 51 Year
  Sex: Female

DRUGS (1)
  1. ENBREL [Suspect]
     Active Substance: ETANERCEPT
     Indication: PRODUCT USED FOR UNKNOWN INDICATION
     Dosage: UNK UNK, UNK
     Route: 065
     Dates: start: 20150522

REACTIONS (8)
  - Joint swelling [Unknown]
  - Breast swelling [Unknown]
  - Headache [Unknown]
  - Gait disturbance [Unknown]
  - Generalised oedema [Unknown]
  - Peripheral swelling [Unknown]
  - Weight increased [Unknown]
  - Vertigo [Unknown]

NARRATIVE: CASE EVENT DATE: 2015
